FAERS Safety Report 4506671-3 (Version None)
Quarter: 2004Q4

REPORT INFORMATION
  Report Type: 
  Country: None (occurrence: None)
  Receive Date: 20041117
  Receipt Date: 20041103
  Transmission Date: 20050328
  Serious: Yes (Other)
  Sender: FDA-Public Use
  Company Number: US014250

PATIENT
  Age: 3 Year
  Sex: Male
  Weight: 15.8759 kg

DRUGS (1)
  1. ACTIQ [Suspect]
     Dosage: 800 UG ONCE BUCCAL
     Route: 002
     Dates: start: 20041103, end: 20041103

REACTIONS (2)
  - ACCIDENTAL EXPOSURE [None]
  - DYSSOMNIA [None]
